FAERS Safety Report 9251347 (Version 4)
Quarter: 2014Q1

REPORT INFORMATION
  Report Type: Spontaneous
  Country: US (occurrence: US)
  Receive Date: 20130424
  Receipt Date: 20140320
  Transmission Date: 20141002
  Serious: Yes (Hospitalization, Disabling)
  Sender: FDA-Public Use
  Company Number: US-ASTRAZENECA-2013SE27369

PATIENT
  Age: 18721 Day
  Sex: Female
  Weight: 71.7 kg

DRUGS (16)
  1. NEXIUM [Suspect]
     Indication: GASTROOESOPHAGEAL REFLUX DISEASE
     Route: 048
     Dates: start: 20021126
  2. ZANTAC [Concomitant]
     Dosage: 150 MG
  3. ROLAIDS [Concomitant]
     Dosage: AS NEEDED
  4. FLEXERIL [Concomitant]
     Indication: MUSCLE TONE DISORDER
     Dosage: AS NEEDED
  5. IBUPROFEN/MOTRIN [Concomitant]
     Indication: PAIN
     Dosage: AS NEEDED
  6. VICODIN [Concomitant]
     Indication: PAIN
     Dosage: AS NEEDED
  7. FISH OIL [Concomitant]
     Indication: CARDIAC DISORDER
     Dosage: AS NEEDED
  8. FISH OIL [Concomitant]
     Indication: BLOOD CHOLESTEROL ABNORMAL
     Dosage: AS NEEDED
  9. 1-A-DAY MULTIVITAMIN [Concomitant]
     Dosage: AS NEEDED
  10. OCUVITE [Concomitant]
     Indication: EYE DISORDER
     Dosage: AS NEEDED
  11. CELEXA [Concomitant]
     Dosage: AS NEEDED
  12. DIOVAN [Concomitant]
     Dates: start: 200808
  13. PRILOSEC [Concomitant]
  14. LEXAPRO [Concomitant]
  15. ZOLOFT [Concomitant]
  16. VYTORIN [Concomitant]

REACTIONS (14)
  - Osteoporosis [Unknown]
  - Wrist fracture [Unknown]
  - Foot fracture [Unknown]
  - Ankle fracture [Unknown]
  - Rib fracture [Unknown]
  - Radius fracture [Unknown]
  - Bone disorder [Unknown]
  - Multiple fractures [Unknown]
  - Arthritis [Unknown]
  - Bone pain [Unknown]
  - Road traffic accident [Unknown]
  - Osteoarthritis [Unknown]
  - Fall [Unknown]
  - Osteopenia [Unknown]
